FAERS Safety Report 23805507 (Version 1)
Quarter: 2024Q2

REPORT INFORMATION
  Report Type: Spontaneous
  Country: US (occurrence: US)
  Receive Date: 20240502
  Receipt Date: 20240502
  Transmission Date: 20240716
  Serious: No
  Sender: FDA-Public Use
  Company Number: US-HETERO-HET2024US01220

PATIENT
  Sex: Male

DRUGS (1)
  1. DIMETHYL FUMARATE [Suspect]
     Active Substance: DIMETHYL FUMARATE
     Indication: Product used for unknown indication
     Dosage: UNK
     Route: 065

REACTIONS (8)
  - Hot flush [Unknown]
  - Temperature intolerance [Unknown]
  - Feeling abnormal [Unknown]
  - Illness [Unknown]
  - Fatigue [Unknown]
  - Sluggishness [Unknown]
  - Unevaluable event [Unknown]
  - Flatulence [Unknown]
